FAERS Safety Report 6844641-0 (Version None)
Quarter: 2010Q3

REPORT INFORMATION
  Report Type: 
  Country: None (occurrence: None)
  Receive Date: 20100715
  Receipt Date: 20100709
  Transmission Date: 20110219
  Serious: Yes (Other)
  Sender: FDA-Public Use
  Company Number: US-MERCK-1006USA01600

PATIENT
  Age: 53 Year
  Sex: Female
  Weight: 82 kg

DRUGS (7)
  1. SINGULAIR [Suspect]
     Indication: ASTHMA
     Route: 048
     Dates: start: 20090210, end: 20090914
  2. SINGULAIR [Suspect]
     Indication: RHINITIS ALLERGIC
     Route: 048
     Dates: start: 20090210, end: 20090914
  3. AMBIEN [Concomitant]
     Indication: INSOMNIA
     Route: 048
  4. CLONAZEPAM [Concomitant]
     Indication: ANXIETY
     Route: 048
  5. SKELAXIN [Concomitant]
     Indication: FIBROMYALGIA
     Route: 065
  6. TOPAMAX [Concomitant]
     Indication: MIGRAINE
     Route: 065
  7. EVOXAC [Concomitant]
     Indication: SJOGREN'S SYNDROME
     Route: 048

REACTIONS (2)
  - DEPRESSED MOOD [None]
  - SUICIDAL IDEATION [None]
